FAERS Safety Report 11531646 (Version 5)
Quarter: 2015Q4

REPORT INFORMATION
  Report Type: Spontaneous
  Country: CA (occurrence: CA)
  Receive Date: 20150921
  Receipt Date: 20151119
  Transmission Date: 20160304
  Serious: Yes (Hospitalization)
  Sender: FDA-Public Use
  Company Number: CA-UNITED THERAPEUTICS-UNT-2015-010455

PATIENT
  Age: 70 Year
  Sex: Female

DRUGS (2)
  1. REMODULIN [Suspect]
     Active Substance: TREPROSTINIL
     Indication: PULMONARY HYPERTENSION
     Dosage: 6.25 UNK, CONTINUING
     Route: 058
     Dates: start: 20150811
  2. REMODULIN [Suspect]
     Active Substance: TREPROSTINIL
     Indication: PULMONARY ARTERIAL HYPERTENSION
     Dosage: UNK, CONTINUING
     Route: 058
     Dates: start: 20150911

REACTIONS (25)
  - Pericardial effusion [Unknown]
  - Chest pain [Recovered/Resolved with Sequelae]
  - Incorrect dose administered [Unknown]
  - Pain in extremity [Not Recovered/Not Resolved]
  - Contusion [Not Recovered/Not Resolved]
  - Constipation [Recovering/Resolving]
  - Burning sensation [Not Recovered/Not Resolved]
  - Diarrhoea [Unknown]
  - Rash [Recovered/Resolved]
  - Pain [Recovered/Resolved]
  - Traumatic haemorrhage [Recovered/Resolved]
  - Device issue [Unknown]
  - Weight increased [Recovering/Resolving]
  - Syncope [Recovered/Resolved]
  - Supraventricular tachycardia [Unknown]
  - Infusion site erythema [Recovering/Resolving]
  - Pneumonia [Unknown]
  - Oedema peripheral [Unknown]
  - Nausea [Recovered/Resolved]
  - Abdominal pain [Recovered/Resolved]
  - Loss of consciousness [Recovered/Resolved with Sequelae]
  - Headache [Recovering/Resolving]
  - Fatigue [Not Recovered/Not Resolved]
  - Pleural effusion [Unknown]
  - Mass [Unknown]

NARRATIVE: CASE EVENT DATE: 2015
